FAERS Safety Report 20575782 (Version 2)
Quarter: 2022Q1

REPORT INFORMATION
  Report Type: Spontaneous
  Country: DE (occurrence: None)
  Receive Date: 20220310
  Receipt Date: 20220322
  Transmission Date: 20220423
  Serious: Yes (Other)
  Sender: FDA-Public Use
  Company Number: DE-ROCHE-3014273

PATIENT
  Age: 58 Year
  Sex: Male
  Weight: 87 kg

DRUGS (4)
  1. OCREVUS [Suspect]
     Active Substance: OCRELIZUMAB
     Indication: Secondary progressive multiple sclerosis
     Route: 042
     Dates: start: 20201104, end: 20210606
  2. TECFIDERA [Suspect]
     Active Substance: DIMETHYL FUMARATE
     Indication: Relapsing-remitting multiple sclerosis
     Route: 048
     Dates: start: 2015, end: 202007
  3. COMIRNATY [Concomitant]
     Active Substance: TOZINAMERAN
     Indication: COVID-19 prophylaxis
     Dosage: TWO BASIC VACCINATIONS, ONE BOOSTER
     Route: 030
     Dates: start: 20210413, end: 20211230
  4. EFLUELDA [Concomitant]
     Indication: Influenza immunisation
     Dosage: TETRAVALENT
     Route: 030
     Dates: start: 20211203, end: 20211203

REACTIONS (9)
  - Vaccination failure [Unknown]
  - Vaccination failure [Not Recovered/Not Resolved]
  - Papillary cystadenoma lymphomatosum [Not Recovered/Not Resolved]
  - Lymphopenia [Not Recovered/Not Resolved]
  - Lymphopenia [Not Recovered/Not Resolved]
  - CD4 lymphocytes increased [Not Recovered/Not Resolved]
  - Papillary cystadenoma lymphomatosum [Recovered/Resolved]
  - Off label use [Unknown]
  - Immunosuppression [Recovered/Resolved]

NARRATIVE: CASE EVENT DATE: 20190906
